FAERS Safety Report 15432122 (Version 1)
Quarter: 2018Q3

REPORT INFORMATION
  Report Type: Spontaneous
  Country: FR (occurrence: FR)
  Receive Date: 20180926
  Receipt Date: 20180926
  Transmission Date: 20181010
  Serious: Yes (Hospitalization, Other)
  Sender: FDA-Public Use
  Company Number: FR-BAUSCH-BL-2018-025888

PATIENT
  Age: 86 Year
  Sex: Male
  Weight: 78 kg

DRUGS (11)
  1. MOVICOL [Concomitant]
     Active Substance: POLYETHYLENE GLYCOL 3350\POTASSIUM CHLORIDE\SODIUM BICARBONATE\SODIUM CHLORIDE
     Indication: PRODUCT USED FOR UNKNOWN INDICATION
     Dosage: 1 OTHER, DAILY
     Route: 048
     Dates: start: 201711
  2. LERCANIDIPINE [Concomitant]
     Active Substance: LERCANIDIPINE
     Indication: PRODUCT USED FOR UNKNOWN INDICATION
     Route: 048
     Dates: start: 20170807, end: 201711
  3. GENTAMYCIN [Suspect]
     Active Substance: GENTAMICIN
     Indication: ENDOCARDITIS
     Route: 065
  4. GENTAMYCIN [Interacting]
     Active Substance: GENTAMICIN
     Indication: BLOOD CULTURE POSITIVE
     Route: 065
     Dates: start: 201711
  5. AMLOR [Concomitant]
     Active Substance: AMLODIPINE BESYLATE
     Indication: HYPERTENSION
     Route: 048
     Dates: start: 201711
  6. DIFFU?K [Concomitant]
     Active Substance: POTASSIUM CHLORIDE
     Indication: PRODUCT USED FOR UNKNOWN INDICATION
     Route: 065
  7. TEMESTA [Concomitant]
     Indication: PRODUCT USED FOR UNKNOWN INDICATION
     Route: 065
  8. WARFARIN SODIUM. [Interacting]
     Active Substance: WARFARIN SODIUM
     Indication: PRODUCT USED FOR UNKNOWN INDICATION
     Route: 065
     Dates: start: 201712
  9. WARFARIN SODIUM. [Interacting]
     Active Substance: WARFARIN SODIUM
     Route: 048
     Dates: start: 20170804, end: 20171120
  10. FUROSEMIDE. [Concomitant]
     Active Substance: FUROSEMIDE
     Indication: POLYURIA
     Route: 048
     Dates: start: 20170807
  11. ATORVASTATINE [Concomitant]
     Active Substance: ATORVASTATIN
     Indication: DYSLIPIDAEMIA
     Route: 048
     Dates: start: 20170807

REACTIONS (12)
  - Chronic sinusitis [Unknown]
  - Prerenal failure [Recovered/Resolved]
  - Skin lesion [Recovering/Resolving]
  - Endocarditis [Recovered/Resolved]
  - Cerebral disorder [Not Recovered/Not Resolved]
  - Oral candidiasis [Recovering/Resolving]
  - Drug interaction [Recovered/Resolved]
  - Anaemia [Recovered/Resolved]
  - Overdose [Recovered/Resolved]
  - Cell death [Recovered/Resolved]
  - Pneumococcal sepsis [Unknown]
  - Cholestasis [Recovered/Resolved]

NARRATIVE: CASE EVENT DATE: 20171030
